FAERS Safety Report 18521935 (Version 2)
Quarter: 2020Q4

REPORT INFORMATION
  Report Type: Report from Study
  Country: LB (occurrence: LB)
  Receive Date: 20201119
  Receipt Date: 20201204
  Transmission Date: 20210114
  Serious: Yes (Death)
  Sender: FDA-Public Use
  Company Number: LB-BAYER-2020-248087

PATIENT
  Sex: Female

DRUGS (1)
  1. LAROTRECTINIB [Suspect]
     Active Substance: LAROTRECTINIB
     Indication: GLIOMA
     Dosage: UNK
     Dates: start: 20201027, end: 20201113

REACTIONS (1)
  - Glioma [Fatal]
